FAERS Safety Report 8552821-1 (Version None)
Quarter: 2012Q3

REPORT INFORMATION
  Report Type: 
  Country: None (occurrence: None)
  Receive Date: 20120731
  Receipt Date: 20120726
  Transmission Date: 20120928
  Serious: Yes (Death)
  Sender: FDA-Public Use
  Company Number: PHHY2012MX065244

PATIENT
  Sex: Female

DRUGS (3)
  1. TRAMADOL HYDROCHLORIDE [Concomitant]
     Indication: PAIN IN EXTREMITY
     Dates: start: 20100101, end: 20120701
  2. GABAPENTIN [Concomitant]
     Indication: PAIN IN EXTREMITY
     Dates: start: 20100101, end: 20120701
  3. ZOLEDRONOC ACID [Suspect]
     Indication: OSTEOPOROSIS
     Dosage: 5 MG/ 100 ML, EACH YEAR
     Route: 042
     Dates: start: 20120601

REACTIONS (1)
  - DEATH [None]
